FAERS Safety Report 19238587 (Version 1)
Quarter: 2021Q2

REPORT INFORMATION
  Report Type: Report from Study
  Country: IT (occurrence: IT)
  Receive Date: 20210510
  Receipt Date: 20210510
  Transmission Date: 20210717
  Serious: Yes (Other)
  Sender: FDA-Public Use
  Company Number: IT-TEVA-2021-IT-1908817

PATIENT
  Age: 34 Year
  Sex: Female

DRUGS (4)
  1. PROPAFENONE. [Suspect]
     Active Substance: PROPAFENONE
     Indication: CARDIOVERSION
     Dosage: 210MILLIGRAM
     Dates: start: 20210319, end: 20210319
  2. GAVISCON [Concomitant]
     Active Substance: ALUMINUM HYDROXIDE\MAGNESIUM CARBONATE
  3. ESOMEPRAZOLE. [Concomitant]
     Active Substance: ESOMEPRAZOLE MAGNESIUM
  4. ADENOSINE. [Suspect]
     Active Substance: ADENOSINE
     Indication: CARDIOVERSION
     Dosage: 6MILLIGRAM
     Dates: start: 20210319, end: 20210319

REACTIONS (1)
  - Atrial flutter [Recovering/Resolving]

NARRATIVE: CASE EVENT DATE: 20210319
